FAERS Safety Report 16573587 (Version 2)
Quarter: 2019Q3

REPORT INFORMATION
  Report Type: Spontaneous
  Country: US (occurrence: US)
  Receive Date: 20190715
  Receipt Date: 20190723
  Transmission Date: 20191004
  Serious: Yes (Other)
  Sender: FDA-Public Use
  Company Number: US-SA-2019SA184582

PATIENT
  Age: 81 Year
  Sex: Male

DRUGS (1)
  1. LANTUS [Suspect]
     Active Substance: INSULIN GLARGINE
     Indication: TYPE 2 DIABETES MELLITUS
     Dosage: 35 U, QD
     Route: 065

REACTIONS (13)
  - Inappropriate schedule of product administration [Unknown]
  - Bone disorder [Unknown]
  - Lupus-like syndrome [Unknown]
  - Unevaluable event [Unknown]
  - Drug ineffective [Unknown]
  - Lymphoma [Unknown]
  - Nervousness [Unknown]
  - Extra dose administered [Unknown]
  - Neuropathy peripheral [Unknown]
  - Spinal fracture [Unknown]
  - Blood glucose increased [Unknown]
  - Blood glucose decreased [Unknown]
  - Infection [Unknown]

NARRATIVE: CASE EVENT DATE: 20190705
